FAERS Safety Report 7577825-7 (Version None)
Quarter: 2011Q2

REPORT INFORMATION
  Report Type: 
  Country: None (occurrence: None)
  Receive Date: 20110628
  Receipt Date: 20110616
  Transmission Date: 20111010
  Serious: Yes (Other)
  Sender: FDA-Public Use
  Company Number: PHHY2010US70019

PATIENT
  Sex: Male

DRUGS (1)
  1. EXJADE [Suspect]
     Dosage: 1000 MG, QD
     Route: 048

REACTIONS (6)
  - VISUAL IMPAIRMENT [None]
  - DIARRHOEA [None]
  - SKIN DISORDER [None]
  - ASTHENIA [None]
  - PRURITUS [None]
  - HEARING IMPAIRED [None]
